FAERS Safety Report 23463649 (Version 1)
Quarter: 2024Q1

REPORT INFORMATION
  Report Type: Report from Study
  Country: US (occurrence: US)
  Receive Date: 20240131
  Receipt Date: 20240131
  Transmission Date: 20240409
  Serious: Yes (Hospitalization, Other)
  Sender: FDA-Public Use
  Company Number: US-ABBVIE-5570032

PATIENT
  Sex: Female

DRUGS (3)
  1. VENCLEXTA [Suspect]
     Active Substance: VENETOCLAX
     Indication: Chronic lymphocytic leukaemia
     Route: 048
     Dates: start: 20220531
  2. VENCLEXTA [Suspect]
     Active Substance: VENETOCLAX
     Indication: Chronic lymphocytic leukaemia
     Dosage: LAST ADMIN DATE- 2022
     Route: 048
     Dates: start: 202204
  3. VENCLEXTA [Suspect]
     Active Substance: VENETOCLAX
     Indication: Chronic lymphocytic leukaemia
     Route: 048
     Dates: end: 202401

REACTIONS (6)
  - Hospitalisation [Recovering/Resolving]
  - Sinus headache [Unknown]
  - Diarrhoea [Recovering/Resolving]
  - Fall [Recovering/Resolving]
  - Cerebrovascular accident [Recovering/Resolving]
  - Fatigue [Recovering/Resolving]
